FAERS Safety Report 7943202-X (Version None)
Quarter: 2011Q4

REPORT INFORMATION
  Report Type: 
  Country: None (occurrence: None)
  Receive Date: 20111128
  Receipt Date: 20111014
  Transmission Date: 20120403
  Serious: Yes (Hospitalization, Other)
  Sender: FDA-Public Use
  Company Number: PHHO2011US17471

PATIENT
  Sex: Male
  Weight: 120 kg

DRUGS (11)
  1. LASIX [Concomitant]
  2. NOVOLOG [Concomitant]
     Dosage: 10-15 U
  3. ALISKIREN [Suspect]
     Indication: CARDIOVASCULAR DISORDER
     Dosage: UNK
     Route: 048
     Dates: start: 20100511, end: 20111102
  4. LISINOPRIL [Concomitant]
     Dosage: 40 MG
  5. ALLOPURINOL [Concomitant]
  6. ASPIRIN [Concomitant]
  7. AMLODIPINE [Concomitant]
  8. SIMVASTATIN [Concomitant]
  9. CARDURA [Concomitant]
     Dosage: 4 MG
  10. HUMULIN R [Concomitant]
  11. ASPIRIN [Concomitant]
     Dosage: 81 MG

REACTIONS (2)
  - CARCINOID TUMOUR OF THE DUODENUM [None]
  - IMPAIRED GASTRIC EMPTYING [None]
